FAERS Safety Report 5464084-4 (Version None)
Quarter: 2007Q3

REPORT INFORMATION
  Report Type: 
  Country: None (occurrence: None)
  Receive Date: 20070921
  Receipt Date: 20070911
  Transmission Date: 20080115
  Serious: Yes (Other)
  Sender: FDA-Public Use
  Company Number: US-ROCHE-516866

PATIENT
  Sex: Female

DRUGS (3)
  1. ACCUTANE [Suspect]
     Indication: ACNE
     Dosage: STRENGTH OF CAPSULES WAS NOTED TO BE BOTH 20 MG AND 40 MG (60 MG QAM; 40 MG QPM DAILY)
     Route: 048
     Dates: start: 20070501, end: 20070911
  2. AMNESTEEM [Suspect]
     Indication: ACNE
     Dosage: STRENGTH OF CAPSULES WAS NOTED TO BE BOTH 20 MG AND 40 MG (60 MG QAM; 40 MG QPM DAILY)
     Route: 048
     Dates: start: 20070501, end: 20070911
  3. YASMIN [Concomitant]
     Route: 048
     Dates: start: 20070320

REACTIONS (2)
  - DEPRESSION [None]
  - SELF INJURIOUS BEHAVIOUR [None]
